FAERS Safety Report 12086551 (Version 1)
Quarter: 2016Q1

REPORT INFORMATION
  Report Type: Spontaneous
  Country: None (occurrence: US)
  Receive Date: 20160217
  Receipt Date: 20160217
  Transmission Date: 20160526
  Serious: No
  Sender: FDA-Public Use
  Company Number: US-ALLERGAN-1505145US

PATIENT
  Sex: Female

DRUGS (1)
  1. RESTASIS [Suspect]
     Active Substance: CYCLOSPORINE
     Indication: PRODUCT USED FOR UNKNOWN INDICATION
     Dosage: UNK
     Route: 047
     Dates: start: 201412

REACTIONS (6)
  - Incorrect dose administered [Unknown]
  - Eye pruritus [Unknown]
  - Drug ineffective [Unknown]
  - Eye irritation [Unknown]
  - Eye infection [Unknown]
  - Multiple use of single-use product [Unknown]
